FAERS Safety Report 22648129 (Version 8)
Quarter: 2023Q4

REPORT INFORMATION
  Report Type: Spontaneous
  Country: US (occurrence: US)
  Receive Date: 20230628
  Receipt Date: 20231205
  Transmission Date: 20240110
  Serious: Yes (Other)
  Sender: FDA-Public Use
  Company Number: US-BRISTOL-MYERS SQUIBB COMPANY-2023-090375

PATIENT
  Age: 61 Year
  Sex: Male
  Weight: 72.12 kg

DRUGS (6)
  1. REVLIMID [Suspect]
     Active Substance: LENALIDOMIDE
     Indication: Plasma cell myeloma
     Dosage: DAILY 1-14, THEN 7 DAYS OFF
     Route: 048
     Dates: start: 20230616
  2. VELCADE [Suspect]
     Active Substance: BORTEZOMIB
     Indication: Product used for unknown indication
     Dosage: WEEKLY
     Route: 058
  3. DEXAMETHASONE [Concomitant]
     Active Substance: DEXAMETHASONE
     Indication: Product used for unknown indication
     Route: 048
  4. TYLENOL [Concomitant]
     Active Substance: ACETAMINOPHEN
     Indication: Product used for unknown indication
     Route: 048
  5. ZARXIO [Concomitant]
     Active Substance: FILGRASTIM-SNDZ
     Indication: Product used for unknown indication
     Dosage: 480MCG/0.8ML
     Route: 058
  6. ZARXIO [Concomitant]
     Active Substance: FILGRASTIM-SNDZ
     Dosage: 300MCG/0.5ML
     Route: 058

REACTIONS (26)
  - Dizziness [Not Recovered/Not Resolved]
  - White blood cell count decreased [Recovering/Resolving]
  - Red blood cell count decreased [Not Recovered/Not Resolved]
  - Platelet count decreased [Recovering/Resolving]
  - Haematocrit decreased [Not Recovered/Not Resolved]
  - Off label use [Unknown]
  - Somnolence [Not Recovered/Not Resolved]
  - Fatigue [Not Recovered/Not Resolved]
  - Asthenia [Not Recovered/Not Resolved]
  - Wound haemorrhage [Not Recovered/Not Resolved]
  - Pain in extremity [Not Recovered/Not Resolved]
  - Neck pain [Not Recovered/Not Resolved]
  - Arthralgia [Not Recovered/Not Resolved]
  - Blood pressure decreased [Unknown]
  - Heart rate decreased [Unknown]
  - Peripheral swelling [Not Recovered/Not Resolved]
  - Fluid retention [Not Recovered/Not Resolved]
  - Urine abnormality [Not Recovered/Not Resolved]
  - Weight increased [Unknown]
  - Erythema [Unknown]
  - Pain of skin [Unknown]
  - Neuropathy peripheral [Not Recovered/Not Resolved]
  - Full blood count decreased [Recovering/Resolving]
  - Headache [Not Recovered/Not Resolved]
  - Neuralgia [Not Recovered/Not Resolved]
  - Upper respiratory tract infection [Recovering/Resolving]

NARRATIVE: CASE EVENT DATE: 20230101
